FAERS Safety Report 9677615 (Version 1)
Quarter: 2013Q4

REPORT INFORMATION
  Report Type: Spontaneous
  Country: US (occurrence: US)
  Receive Date: 20131108
  Receipt Date: 20131108
  Transmission Date: 20140711
  Serious: No
  Sender: FDA-Public Use
  Company Number: US-TEVA-442469USA

PATIENT
  Sex: Female
  Weight: 82.17 kg

DRUGS (2)
  1. PROAIR HFA [Suspect]
     Dosage: 2 PUFFS EVERY 4 HRS PRN BEFORE MEALS
  2. STEROID (NOS) [Suspect]

REACTIONS (2)
  - Cough [Not Recovered/Not Resolved]
  - Weight increased [Not Recovered/Not Resolved]
